FAERS Safety Report 6903922-2 (Version None)
Quarter: 2010Q3

REPORT INFORMATION
  Report Type: 
  Country: None (occurrence: None)
  Receive Date: 20100804
  Receipt Date: 20090126
  Transmission Date: 20110219
  Serious: No
  Sender: FDA-Public Use
  Company Number: US-PFIZER INC-2009161935

PATIENT
  Sex: Female
  Weight: 54.4 kg

DRUGS (1)
  1. LYRICA [Suspect]
     Indication: ATAXIA
     Route: 048

REACTIONS (2)
  - DIZZINESS [None]
  - INSOMNIA [None]
